FAERS Safety Report 20746169 (Version 5)
Quarter: 2025Q1

REPORT INFORMATION
  Report Type: Spontaneous
  Country: US (occurrence: US)
  Receive Date: 20220425
  Receipt Date: 20250103
  Transmission Date: 20250408
  Serious: Yes (Other)
  Sender: PFIZER
  Company Number: US-PFIZER INC-202200583019

PATIENT
  Age: 61 Year
  Sex: Female
  Weight: 90.72 kg

DRUGS (11)
  1. IBRANCE [Suspect]
     Active Substance: PALBOCICLIB
     Indication: Breast cancer female
     Route: 048
     Dates: start: 20220215
  2. IBRANCE [Suspect]
     Active Substance: PALBOCICLIB
     Route: 048
  3. IBRANCE [Suspect]
     Active Substance: PALBOCICLIB
     Route: 048
     Dates: start: 20220505
  4. IBRANCE [Suspect]
     Active Substance: PALBOCICLIB
     Route: 048
     Dates: end: 20240125
  5. IBRANCE [Suspect]
     Active Substance: PALBOCICLIB
     Route: 048
  6. AMLODIPINE BESYLATE [Concomitant]
     Active Substance: AMLODIPINE BESYLATE
  7. ATORVASTATIN [Concomitant]
     Active Substance: ATORVASTATIN
  8. DIPHENHYDRAMINE [Concomitant]
     Active Substance: DIPHENHYDRAMINE
  9. HYDROCHLOROTHIAZIDE [Concomitant]
     Active Substance: HYDROCHLOROTHIAZIDE
  10. FEMARA [Concomitant]
     Active Substance: LETROZOLE
  11. VITAMIN D NOS [Concomitant]
     Active Substance: CHOLECALCIFEROL\ERGOCALCIFEROL

REACTIONS (4)
  - Neutropenia [Recovering/Resolving]
  - Neoplasm progression [Unknown]
  - Off label use [Unknown]
  - White blood cell count decreased [Unknown]
